FAERS Safety Report 8417289-4 (Version None)
Quarter: 2012Q2

REPORT INFORMATION
  Report Type: 
  Country: None (occurrence: None)
  Receive Date: 20120606
  Receipt Date: 20120601
  Transmission Date: 20120825
  Serious: Yes (Other)
  Sender: FDA-Public Use
  Company Number: FR-ROXANE LABORATORIES, INC.-2012-RO-01359RO

PATIENT
  Age: 44 Year
  Sex: Male

DRUGS (5)
  1. METHADONE HCL [Suspect]
     Indication: DRUG WITHDRAWAL MAINTENANCE THERAPY
     Dosage: 160 MG
  2. METHADONE HCL [Suspect]
     Dosage: 250 MG
  3. METHADONE HCL [Suspect]
  4. PAROXETINE [Suspect]
     Indication: DRUG WITHDRAWAL MAINTENANCE THERAPY
     Dosage: 20 MG
  5. ALPRAZOLAM [Suspect]
     Indication: DRUG WITHDRAWAL MAINTENANCE THERAPY

REACTIONS (6)
  - SINUS BRADYCARDIA [None]
  - TORSADE DE POINTES [None]
  - ELECTROCARDIOGRAM QT PROLONGED [None]
  - EXTRASYSTOLES [None]
  - VENTRICULAR EXTRASYSTOLES [None]
  - LOSS OF CONSCIOUSNESS [None]
